FAERS Safety Report 19816840 (Version 7)
Quarter: 2024Q1

REPORT INFORMATION
  Report Type: Report from Study
  Country: NL (occurrence: NL)
  Receive Date: 20210909
  Receipt Date: 20240314
  Transmission Date: 20240410
  Serious: Yes (Other)
  Sender: FDA-Public Use
  Company Number: NL-SA-SAC20210508000921

PATIENT
  Age: 38 Year

DRUGS (2)
  1. DUPILUMAB [Suspect]
     Active Substance: DUPILUMAB
     Indication: Dermatitis atopic
     Dosage: 300 MG, QOW
     Dates: start: 20190924
  2. DUPILUMAB [Suspect]
     Active Substance: DUPILUMAB
     Dosage: 300 MG, Q4W

REACTIONS (7)
  - Rosacea [Not Recovered/Not Resolved]
  - Oral herpes [Recovered/Resolved]
  - Headache [Unknown]
  - Herpes simplex [Not Recovered/Not Resolved]
  - Weight increased [Unknown]
  - Folliculitis [Unknown]
  - Dizziness [Unknown]

NARRATIVE: CASE EVENT DATE: 20200115
